FAERS Safety Report 16113293 (Version 2)
Quarter: 2019Q2

REPORT INFORMATION
  Report Type: Spontaneous
  Country: US (occurrence: US)
  Receive Date: 20190325
  Receipt Date: 20190412
  Transmission Date: 20190711
  Serious: Yes (Other)
  Sender: FDA-Public Use
  Company Number: US-AKORN PHARMACEUTICALS-2019AKN00514

PATIENT
  Age: 20 Year
  Sex: Female
  Weight: 52.15 kg

DRUGS (2)
  1. MYORISAN [Suspect]
     Active Substance: ISOTRETINOIN
     Indication: ACNE
     Dosage: 30 MG, 1X/DAY
     Route: 048
     Dates: start: 20190205, end: 20190311
  2. TRI-SPRINTEC [Concomitant]
     Active Substance: ETHINYL ESTRADIOL\NORGESTIMATE

REACTIONS (7)
  - Off label use [Recovered/Resolved]
  - Stress [Unknown]
  - Depression [Unknown]
  - Dry skin [Unknown]
  - Lip dry [Unknown]
  - Abnormal behaviour [Unknown]
  - Anxiety [Unknown]

NARRATIVE: CASE EVENT DATE: 2019
